FAERS Safety Report 16986577 (Version 1)
Quarter: 2019Q4

REPORT INFORMATION
  Report Type: Spontaneous
  Country: US (occurrence: US)
  Receive Date: 20190919
  Receipt Date: 20190919
  Transmission Date: 20200122
  Serious: Yes (Death)
  Sender: FDA-Public Use
  Company Number: None

PATIENT
  Sex: Female

DRUGS (2)
  1. FORTEO [Suspect]
     Active Substance: TERIPARATIDE
     Indication: OSTEOPOROTIC FRACTURE
  2. FORTEO [Suspect]
     Active Substance: TERIPARATIDE
     Indication: BACK PAIN
     Route: 058
     Dates: start: 20190221

REACTIONS (1)
  - Chronic obstructive pulmonary disease [None]
